FAERS Safety Report 5129531-6 (Version None)
Quarter: 2006Q4

REPORT INFORMATION
  Report Type: 
  Country: None (occurrence: None)
  Receive Date: 20061012
  Receipt Date: 20060831
  Transmission Date: 20070319
  Serious: Yes (Hospitalization, Other)
  Sender: FDA-Public Use
  Company Number: 2006-07-1715

PATIENT
  Age: 54 Year
  Sex: Female

DRUGS (6)
  1. PEG-INTRON [Suspect]
     Indication: HEPATITIS C
     Dosage: SC
     Route: 058
     Dates: start: 20060705, end: 20060719
  2. RIBASPHERE [Suspect]
     Indication: HEPATITIS C
     Dosage: PO
     Route: 048
     Dates: start: 20060705
  3. MILTIVITAMINS (CON.) [Concomitant]
  4. NORVASC (CON.) [Concomitant]
  5. RISPERDAL (CON.) [Concomitant]
  6. SEROQUEL (CON.) [Concomitant]

REACTIONS (15)
  - ABDOMINAL PAIN LOWER [None]
  - ANOREXIA [None]
  - ANXIETY [None]
  - BREAST MASS [None]
  - CHEST PAIN [None]
  - COUGH [None]
  - CRYING [None]
  - DEPRESSION [None]
  - DRUG ABUSER [None]
  - FEELING JITTERY [None]
  - HAEMATOCHEZIA [None]
  - INSOMNIA [None]
  - LOSS OF CONSCIOUSNESS [None]
  - LOWER RESPIRATORY TRACT INFECTION [None]
  - PANIC ATTACK [None]
